FAERS Safety Report 12146801 (Version 1)
Quarter: 2016Q1

REPORT INFORMATION
  Report Type: Spontaneous
  Country: US (occurrence: US)
  Receive Date: 20160304
  Receipt Date: 20160304
  Transmission Date: 20160526
  Serious: No
  Sender: FDA-Public Use
  Company Number: US-BAXTER-2016BAX010196

PATIENT
  Sex: Male

DRUGS (1)
  1. DIANEAL LOW CALCIUM PERITONEAL DIALYSIS SOLUTION WITH DEXTROSE [Suspect]
     Active Substance: CALCIUM CHLORIDE\DEXTROSE\MAGNESIUM CHLORIDE\SODIUM CHLORIDE\SODIUM LACTATE
     Indication: PERITONEAL DIALYSIS
     Route: 033

REACTIONS (5)
  - Vomiting [Not Recovered/Not Resolved]
  - Pruritus [Unknown]
  - Abdominal discomfort [Not Recovered/Not Resolved]
  - Muscle spasms [Unknown]
  - Abdominal pain [Not Recovered/Not Resolved]
